FAERS Safety Report 9140327 (Version 1)
Quarter: 2013Q1

REPORT INFORMATION
  Report Type: Spontaneous
  Country: IN (occurrence: IN)
  Receive Date: 20130305
  Receipt Date: 20130305
  Transmission Date: 20140127
  Serious: Yes (Death)
  Sender: FDA-Public Use
  Company Number: IN-ASTRAZENECA-2013SE14335

PATIENT
  Age: 60 Year
  Sex: Male
  Weight: 70 kg

DRUGS (2)
  1. BRILINTA [Suspect]
     Route: 048
  2. ECOSPRIN [Suspect]
     Route: 065

REACTIONS (1)
  - Cerebrovascular accident [Fatal]
